FAERS Safety Report 21642136 (Version 4)
Quarter: 2025Q4

REPORT INFORMATION
  Report Type: Report from Study
  Country: CA (occurrence: CA)
  Receive Date: 20221125
  Receipt Date: 20251010
  Transmission Date: 20260117
  Serious: Yes (Hospitalization)
  Sender: CHIESI
  Company Number: CA-CHIESI-2022CHF02497

PATIENT
  Age: 56 Year
  Sex: Female
  Weight: 90.7 kg

DRUGS (3)
  1. DEFERIPRONE [Suspect]
     Active Substance: DEFERIPRONE
     Indication: Thalassaemia
     Dosage: UNK, Q8H
     Route: 048
  2. DEFERIPRONE [Suspect]
     Active Substance: DEFERIPRONE
     Dosage: 2000 MILLIGRAM, TID
     Route: 048
     Dates: start: 20210603
  3. DEFERIPRONE [Suspect]
     Active Substance: DEFERIPRONE
     Dosage: 3000 MILLIGRAM, TID
     Route: 048

REACTIONS (9)
  - Kidney infection [Recovered/Resolved]
  - Infection [Unknown]
  - Dehydration [Unknown]
  - Vomiting [Not Recovered/Not Resolved]
  - Drug titration error [Not Recovered/Not Resolved]
  - Kidney infection [Unknown]
  - Product dose omission issue [Not Recovered/Not Resolved]
  - Gastritis [Not Recovered/Not Resolved]
  - Off label use [Recovered/Resolved]

NARRATIVE: CASE EVENT DATE: 20210603
